APPROVED DRUG PRODUCT: SEDAPAP
Active Ingredient: ACETAMINOPHEN; BUTALBITAL
Strength: 650MG;50MG
Dosage Form/Route: TABLET;ORAL
Application: A088944 | Product #001
Applicant: MAYRAND INC
Approved: Oct 17, 1985 | RLD: No | RS: No | Type: DISCN